FAERS Safety Report 23988096 (Version 3)
Quarter: 2025Q1

REPORT INFORMATION
  Report Type: Spontaneous
  Country: JP (occurrence: JP)
  Receive Date: 20240619
  Receipt Date: 20250210
  Transmission Date: 20250408
  Serious: Yes (Death, Hospitalization, Other)
  Sender: BRISTOL-MYERS SQUIBB COMPANY
  Company Number: JP-BRISTOL-MYERS SQUIBB COMPANY-2024-097006

PATIENT
  Age: 85 Year
  Sex: Male
  Weight: 57 kg

DRUGS (13)
  1. REBLOZYL [Suspect]
     Active Substance: LUSPATERCEPT-AAMT
     Indication: Anaemia of malignant disease
     Dosage: DOSE : 1 MG/KG
     Route: 058
     Dates: start: 20240529, end: 20240529
  2. METHENOLONE ACETATE [Concomitant]
     Active Substance: METHENOLONE ACETATE
     Indication: Myelodysplastic syndrome
     Route: 048
     Dates: start: 20240229, end: 20240610
  3. DEFERASIROX [Concomitant]
     Active Substance: DEFERASIROX
     Indication: Iron overload
     Route: 048
     Dates: start: 20230628, end: 20240610
  4. BISOPROLOL [Concomitant]
     Active Substance: BISOPROLOL
     Indication: Cardiac failure chronic
     Route: 048
     Dates: end: 20240610
  5. AZOSEMIDE [Concomitant]
     Active Substance: AZOSEMIDE
     Indication: Cardiac failure chronic
     Dates: end: 20240610
  6. LANSOPRAZOLE [Concomitant]
     Active Substance: LANSOPRAZOLE
     Indication: Prophylaxis
     Route: 048
     Dates: end: 20240610
  7. DIFLUCAN [Concomitant]
     Active Substance: FLUCONAZOLE
     Indication: Prophylaxis
     Route: 048
     Dates: start: 20231117, end: 20240610
  8. MAGNESIUM OXIDE E [Concomitant]
     Indication: Product used for unknown indication
  9. ESZOPICLONE [Concomitant]
     Active Substance: ESZOPICLONE
     Indication: Product used for unknown indication
  10. EPINASTINE HYDROCHLORIDE [Concomitant]
     Active Substance: EPINASTINE HYDROCHLORIDE
     Indication: Product used for unknown indication
  11. REBAMIPIDE [Concomitant]
     Active Substance: REBAMIPIDE
     Indication: Product used for unknown indication
  12. SITAFLOXACIN ANHYDROUS [Concomitant]
     Indication: Product used for unknown indication
  13. SULFAMETHOXAZOLE\TRIMETHOPRIM [Concomitant]
     Active Substance: SULFAMETHOXAZOLE\TRIMETHOPRIM
     Indication: Product used for unknown indication

REACTIONS (3)
  - Shock haemorrhagic [Fatal]
  - Pneumonia [Fatal]
  - Large intestinal haemorrhage [Fatal]

NARRATIVE: CASE EVENT DATE: 20240608
